FAERS Safety Report 7766023-X (Version None)
Quarter: 2011Q3

REPORT INFORMATION
  Report Type: 
  Country: None (occurrence: None)
  Receive Date: 20110921
  Receipt Date: 20110908
  Transmission Date: 20111222
  Serious: Yes (Other)
  Sender: FDA-Public Use
  Company Number: GB-MYLANLABS-2011S1013754

PATIENT
  Sex: Male

DRUGS (7)
  1. TACROLIMUS [Suspect]
     Indication: IMMUNOSUPPRESSION
  2. BETA BLOCKING AGENTS [Concomitant]
     Indication: PRODUCT USED FOR UNKNOWN INDICATION
  3. MYCOPHENOLATE MOFETIL [Suspect]
     Indication: IMMUNOSUPPRESSION
     Dosage: DOSE UNIT:300
  4. MYCOPHENOLATE MOFETIL [Suspect]
     Dosage: DOSE UNIT:600
  5. PREDNISOLONE [Suspect]
     Route: 048
  6. PREDNISOLONE [Suspect]
     Indication: IMMUNOSUPPRESSION
     Route: 048
  7. CALCIUM CHANNEL BLOCKERS [Concomitant]
     Indication: HYPERTENSION

REACTIONS (4)
  - SKIN PAPILLOMA [None]
  - CUSHINGOID [None]
  - TUBULOINTERSTITIAL NEPHRITIS AND UVEITIS SYNDROME [None]
  - DRUG INEFFECTIVE [None]
